FAERS Safety Report 17510907 (Version 2)
Quarter: 2020Q1

REPORT INFORMATION
  Report Type: Spontaneous
  Country: US (occurrence: US)
  Receive Date: 20200306
  Receipt Date: 20200306
  Transmission Date: 20200409
  Serious: No
  Sender: FDA-Public Use
  Company Number: US-IPSEN BIOPHARMACEUTICALS, INC.-2020-04269

PATIENT
  Sex: Female

DRUGS (1)
  1. DYSPORT [Suspect]
     Active Substance: ABOBOTULINUMTOXINA
     Indication: SKIN COSMETIC PROCEDURE
     Dosage: DOSE NOT REPORTED
     Route: 065

REACTIONS (3)
  - Headache [Not Recovered/Not Resolved]
  - Vision blurred [Unknown]
  - Metamorphopsia [Unknown]

NARRATIVE: CASE EVENT DATE: 202002
